FAERS Safety Report 11926634 (Version 6)
Quarter: 2016Q2

REPORT INFORMATION
  Report Type: Report from Study
  Country: CA (occurrence: CA)
  Receive Date: 20160119
  Receipt Date: 20160522
  Transmission Date: 20160815
  Serious: Yes (Hospitalization, Other)
  Sender: FDA-Public Use
  Company Number: PHHY2015CA106368

PATIENT
  Age: 55 Year
  Sex: Female

DRUGS (1)
  1. SANDOSTATIN LAR DEPOT [Suspect]
     Active Substance: OCTREOTIDE ACETATE
     Indication: NEUROENDOCRINE TUMOUR
     Dosage: 30 MG, QMO (EVERY 4 WEEKS)
     Route: 030
     Dates: start: 20150808

REACTIONS (23)
  - Vomiting [Not Recovered/Not Resolved]
  - Lung disorder [Unknown]
  - Weight decreased [Unknown]
  - Hot flush [Unknown]
  - Blood pressure increased [Unknown]
  - Dehydration [Unknown]
  - Local swelling [Unknown]
  - Heart rate decreased [Unknown]
  - Abdominal distension [Unknown]
  - Fatigue [Unknown]
  - Intestinal obstruction [Unknown]
  - Hyperhidrosis [Unknown]
  - Peripheral swelling [Unknown]
  - Pruritus [Unknown]
  - Hypocalcaemia [Unknown]
  - Nausea [Not Recovered/Not Resolved]
  - Blood pressure systolic increased [Unknown]
  - Hyponatraemia [Unknown]
  - Rash generalised [Unknown]
  - Asthenia [Unknown]
  - Flushing [Unknown]
  - Muscle atrophy [Unknown]
  - Diarrhoea [Recovered/Resolved]

NARRATIVE: CASE EVENT DATE: 2015
